FAERS Safety Report 8650876 (Version 6)
Quarter: 2013Q4

REPORT INFORMATION
  Report Type: Spontaneous
  Country: US (occurrence: US)
  Receive Date: 20120622
  Receipt Date: 20131108
  Transmission Date: 20140711
  Serious: Yes (Hospitalization, Other)
  Sender: FDA-Public Use
  Company Number: US-009507513-2012SP011827

PATIENT
  Age: 27 Year
  Sex: Female
  Weight: 61.24 kg

DRUGS (1)
  1. NUVARING [Suspect]
     Indication: CONTRACEPTION
     Dates: start: 20070623, end: 20100310

REACTIONS (18)
  - Lung disorder [Unknown]
  - Cervical dysplasia [Unknown]
  - Pain [Unknown]
  - Pulmonary embolism [Unknown]
  - Deep vein thrombosis [Unknown]
  - Anxiety [Unknown]
  - Carpal tunnel syndrome [Unknown]
  - Tendonitis [Unknown]
  - Upper respiratory tract infection [Unknown]
  - Malaise [Recovering/Resolving]
  - Pharyngitis [Unknown]
  - Costochondritis [Unknown]
  - Upper respiratory tract infection [Unknown]
  - Bronchitis [Unknown]
  - Upper respiratory tract infection [Unknown]
  - Hepatic cyst [Unknown]
  - Contusion [Unknown]
  - Rash [Recovering/Resolving]
